FAERS Safety Report 17311461 (Version 1)
Quarter: 2020Q1

REPORT INFORMATION
  Report Type: Spontaneous
  Country: US (occurrence: US)
  Receive Date: 20200123
  Receipt Date: 20200123
  Transmission Date: 20200409
  Serious: No
  Sender: FDA-Public Use
  Company Number: US-ROCHE-2227152

PATIENT
  Age: 53 Year
  Sex: Female

DRUGS (4)
  1. PLAVIX [Concomitant]
     Active Substance: CLOPIDOGREL BISULFATE
  2. RITUXAN [Suspect]
     Active Substance: RITUXIMAB
     Indication: DERMATOMYOSITIS
     Dosage: EVERY 280 DAYS. DAILY
     Route: 042
     Dates: start: 20180702
  3. CLONAZEPAM. [Concomitant]
     Active Substance: CLONAZEPAM
  4. AZELAIC ACID. [Concomitant]
     Active Substance: AZELAIC ACID

REACTIONS (3)
  - Intentional product use issue [Unknown]
  - Off label use [Unknown]
  - Fatigue [Recovered/Resolved]

NARRATIVE: CASE EVENT DATE: 20180702
